FAERS Safety Report 5984336-9 (Version None)
Quarter: 2008Q4

REPORT INFORMATION
  Report Type: 
  Country: None (occurrence: None)
  Receive Date: 20081208
  Receipt Date: 20081201
  Transmission Date: 20090506
  Serious: Yes (Other)
  Sender: FDA-Public Use
  Company Number: PHHY2008FR30293

PATIENT
  Age: 50 Year
  Sex: Female

DRUGS (2)
  1. TEGRETOL [Suspect]
     Indication: MYOPATHY
     Dosage: 300 MG DAILY
  2. TEGRETOL [Suspect]
     Indication: MUSCLE SPASMS

REACTIONS (1)
  - AMNESIA [None]
